FAERS Safety Report 24362700 (Version 1)
Quarter: 2024Q3

REPORT INFORMATION
  Report Type: Spontaneous
  Country: CN (occurrence: CN)
  Receive Date: 20240925
  Receipt Date: 20240925
  Transmission Date: 20241016
  Serious: Yes (Disabling)
  Sender: PAREXEL
  Company Number: CN-SHANGHAI JUNSHI BIOSCIENCES CO., LTD.-CN2024011407

PATIENT

DRUGS (5)
  1. TORIPALIMAB [Suspect]
     Active Substance: TORIPALIMAB
     Indication: Bladder cancer
     Dosage: 240 MG
     Route: 041
     Dates: start: 20240521, end: 20240521
  2. TORIPALIMAB [Suspect]
     Active Substance: TORIPALIMAB
     Dosage: 240 MG
     Route: 041
     Dates: start: 20240606, end: 20240606
  3. TORIPALIMAB [Suspect]
     Active Substance: TORIPALIMAB
     Dosage: 240 MG
     Route: 041
     Dates: start: 20240628, end: 20240628
  4. DISITAMAB VEDOTIN [Concomitant]
     Active Substance: DISITAMAB VEDOTIN
     Indication: Bladder cancer
     Dosage: 120 MG
     Dates: start: 20240425, end: 20240425
  5. DISITAMAB VEDOTIN [Concomitant]
     Active Substance: DISITAMAB VEDOTIN
     Dosage: UNK
     Dates: start: 20240606, end: 20240606

REACTIONS (1)
  - Myelosuppression [Unknown]

NARRATIVE: CASE EVENT DATE: 20240628
